FAERS Safety Report 7023601-3 (Version None)
Quarter: 2010Q3

REPORT INFORMATION
  Report Type: 
  Country: None (occurrence: None)
  Receive Date: 20100930
  Receipt Date: 20100930
  Transmission Date: 20110219
  Serious: Yes (Death)
  Sender: FDA-Public Use
  Company Number: None

PATIENT
  Age: 89 Year
  Sex: Female
  Weight: 74.8435 kg

DRUGS (14)
  1. LUCENTIS [Suspect]
     Indication: MACULAR DEGENERATION
     Dosage: 0.05ML ONCE INTRAOCULAR
     Route: 031
     Dates: start: 20100809, end: 20100809
  2. CHLORPROPAMIDE [Concomitant]
  3. TRIAMTERENE AND HYDROCHLOROTHIAZIDE [Concomitant]
  4. FOLAMIN [Concomitant]
  5. SYNTHROID [Concomitant]
  6. NITROGLYCERIN [Concomitant]
  7. LISINOPRIL [Concomitant]
  8. FUROSEMIDE [Concomitant]
  9. PRAVASTAIN [Concomitant]
  10. ASPIRIN [Concomitant]
  11. METOPROLOL TARTRATE [Concomitant]
  12. IRON [Concomitant]
  13. LOVAZA [Concomitant]
  14. XALATAN OPHTH SOL [Concomitant]

REACTIONS (1)
  - MYOCARDIAL INFARCTION [None]
